FAERS Safety Report 12088298 (Version 2)
Quarter: 2016Q1

REPORT INFORMATION
  Report Type: Spontaneous
  Country: US (occurrence: US)
  Receive Date: 20160218
  Receipt Date: 20160328
  Transmission Date: 20160526
  Serious: Yes (Hospitalization, Other)
  Sender: FDA-Public Use
  Company Number: US-BRISTOL-MYERS SQUIBB COMPANY-BMS-2016-008978

PATIENT
  Age: 60 Year
  Sex: Female
  Weight: 109 kg

DRUGS (15)
  1. GARCINIA CAMBOGIA COMP [Concomitant]
     Active Substance: DIETARY SUPPLEMENT
     Indication: DECREASED APPETITE
     Dosage: 2 TAB, BID
     Route: 048
     Dates: start: 20121101
  2. CALCIUM [Concomitant]
     Active Substance: CALCIUM
     Indication: PRODUCT USED FOR UNKNOWN INDICATION
     Dosage: 600 MG, BID
     Route: 048
     Dates: start: 1994
  3. METFORMIN [Concomitant]
     Active Substance: METFORMIN HYDROCHLORIDE
     Indication: DIABETES MELLITUS
     Dosage: 1000 MG, UNK
     Route: 048
     Dates: start: 20141115
  4. DETROL [Concomitant]
     Active Substance: TOLTERODINE TARTRATE
     Indication: BLADDER SPASM
     Dosage: 2 MG, QD
     Route: 048
     Dates: start: 20131001
  5. VITAMIN D3 [Concomitant]
     Active Substance: CHOLECALCIFEROL
     Indication: PRODUCT USED FOR UNKNOWN INDICATION
     Dosage: 1500 IU, TID
     Route: 048
     Dates: start: 1994
  6. LISINOPRIL. [Concomitant]
     Active Substance: LISINOPRIL
     Indication: HYPERTENSION
     Dosage: 10 MG, QD
     Route: 048
     Dates: start: 20150112
  7. CELEXA [Concomitant]
     Active Substance: CITALOPRAM HYDROBROMIDE
     Indication: DEPRESSION
     Dosage: 40 MG, QD
     Route: 048
     Dates: start: 20150726
  8. SIMVASTATIN. [Concomitant]
     Active Substance: SIMVASTATIN
     Indication: HYPERLIPIDAEMIA
     Dosage: 40 MG, UNK
     Route: 048
     Dates: start: 20110130
  9. LEVOTHYROXINE. [Concomitant]
     Active Substance: LEVOTHYROXINE
     Indication: HYPOTHYROIDISM
     Dosage: 137 ?G, QD
     Route: 048
     Dates: start: 1998
  10. B COMPLEX                          /00322001/ [Concomitant]
     Indication: PRODUCT USED FOR UNKNOWN INDICATION
     Dosage: 1 TAB, BID
     Route: 048
     Dates: start: 2009
  11. ASA [Concomitant]
     Active Substance: ASPIRIN
     Indication: CARDIAC ARREST
     Dosage: 81 MG, UNK
     Route: 048
     Dates: start: 201503
  12. LANTUS [Concomitant]
     Active Substance: INSULIN GLARGINE
     Indication: DIABETES MELLITUS
     Dosage: 24 IU, UNK
     Route: 058
     Dates: start: 20150201
  13. COUMADINE [Suspect]
     Active Substance: WARFARIN SODIUM
     Indication: THROMBOSIS
     Dosage: 8 MG, QD
     Route: 048
     Dates: start: 20141108
  14. FISH OIL [Concomitant]
     Active Substance: FISH OIL
     Indication: PRODUCT USED FOR UNKNOWN INDICATION
     Dosage: 1200 MG, BID
     Route: 048
     Dates: start: 1994
  15. MAGNESIUM [Concomitant]
     Active Substance: MAGNESIUM
     Indication: PRODUCT USED FOR UNKNOWN INDICATION
     Dosage: 400 MG, TID
     Route: 048
     Dates: start: 1994

REACTIONS (3)
  - Transfusion [Unknown]
  - Anastomotic ulcer haemorrhage [Recovered/Resolved]
  - Haemorrhagic anaemia [Recovered/Resolved]

NARRATIVE: CASE EVENT DATE: 20151105
